FAERS Safety Report 6029640 (Version 21)
Quarter: 2013Q1

REPORT INFORMATION
  Report Type: Spontaneous
  Country: US (occurrence: US)
  Receive Date: 20060421
  Receipt Date: 20130308
  Transmission Date: 20140127
  Serious: Yes (Death, Hospitalization, Other)
  Sender: FDA-Public Use
  Company Number: PHEH2006US04723

PATIENT
  Age: 67 Year
  Sex: Female
  Weight: 92.97 kg

DRUGS (22)
  1. AREDIA [Suspect]
     Indication: METASTASES TO BONE
     Dosage: 30 MG
     Dates: start: 20021119, end: 20030527
  2. ZOMETA [Suspect]
     Indication: METASTASES TO BONE
     Dosage: 4 MG, UNK
     Dates: start: 20030629, end: 20050810
  3. FEMARA [Concomitant]
     Dosage: 2.5 MG, QD
     Dates: start: 20041116
  4. TRICOR [Concomitant]
     Dosage: 145 MG
  5. VASOTEC [Concomitant]
  6. COREG [Concomitant]
     Dosage: 25 MG
  7. LIPITOR /UNK/ [Concomitant]
     Dosage: 10 MG
     Dates: start: 20050208
  8. PERCOCET [Concomitant]
     Indication: BACK PAIN
  9. PRILOSEC [Concomitant]
  10. DIGOXIN [Concomitant]
  11. GLUCOVANCE [Concomitant]
  12. BISPHOSPHONATES [Concomitant]
  13. LASIX [Concomitant]
  14. NEXIUM [Concomitant]
     Dosage: 40 MG
  15. DIGITEK [Concomitant]
     Dosage: 125 UG
  16. ENALAPRIL [Concomitant]
     Dosage: 10 MG
  17. HYDROCHLOROTHIAZIDE [Concomitant]
     Dosage: 25 MG
  18. GLYBURIDE [Concomitant]
     Dosage: 2.5 MG
  19. VALIUM [Concomitant]
  20. RETIN A [Concomitant]
  21. SOMA [Concomitant]
  22. XANAX [Concomitant]

REACTIONS (67)
  - Death [Fatal]
  - Fall [Unknown]
  - Hip fracture [Unknown]
  - Osteonecrosis of jaw [Recovering/Resolving]
  - Osteomyelitis [Not Recovered/Not Resolved]
  - Fistula [Unknown]
  - Impaired healing [Unknown]
  - Pain [Unknown]
  - Tooth loss [Unknown]
  - Oral infection [Unknown]
  - Deformity [Unknown]
  - Oral discomfort [Unknown]
  - Emotional distress [Unknown]
  - Life expectancy shortened [Unknown]
  - Periodontal disease [Recovering/Resolving]
  - Gingival disorder [Unknown]
  - Tenderness [Recovering/Resolving]
  - Gingival ulceration [Unknown]
  - Pain in jaw [Unknown]
  - Loose tooth [Unknown]
  - Dental discomfort [Unknown]
  - Eating disorder symptom [Unknown]
  - Tooth disorder [Unknown]
  - Dental caries [Unknown]
  - Tooth fracture [Unknown]
  - Bone disorder [Unknown]
  - Toothache [Unknown]
  - Metastases to bone [Unknown]
  - Metastases to lymph nodes [Unknown]
  - Pathological fracture [Unknown]
  - Rib fracture [Unknown]
  - Biopsy chest wall abnormal [Unknown]
  - Malignant neoplasm progression [Unknown]
  - Lung infiltration [Unknown]
  - Pleural effusion [Unknown]
  - Oesophagitis [Unknown]
  - Lymphoedema [Unknown]
  - Biliary dilatation [Unknown]
  - Musculoskeletal pain [Unknown]
  - Fatigue [Unknown]
  - Kyphosis [Unknown]
  - Fibrosis [Unknown]
  - Panic attack [Unknown]
  - Blood glucose increased [Unknown]
  - Blood urea nitrogen/creatinine ratio increased [Unknown]
  - Wound [Unknown]
  - Ecchymosis [Unknown]
  - Faecal incontinence [Unknown]
  - Urinary incontinence [Unknown]
  - Muscular weakness [Unknown]
  - Decreased appetite [Unknown]
  - Foot deformity [Unknown]
  - Gait disturbance [Unknown]
  - Femur fracture [Unknown]
  - Arthralgia [Unknown]
  - Depression [Unknown]
  - Arrhythmia [Unknown]
  - Malaise [Unknown]
  - Metastases to central nervous system [Unknown]
  - Constipation [Unknown]
  - Oedema peripheral [Unknown]
  - Decubitus ulcer [Unknown]
  - Lethargy [Unknown]
  - Blister [Unknown]
  - Muscle atrophy [Unknown]
  - Confusional state [Unknown]
  - Somnolence [Unknown]
